FAERS Safety Report 9049061 (Version 1)
Quarter: 2013Q1

REPORT INFORMATION
  Report Type: Spontaneous
  Country: US (occurrence: None)
  Receive Date: 20130129
  Receipt Date: 20130129
  Transmission Date: 20140127
  Serious: No
  Sender: FDA-Public Use
  Company Number: None

PATIENT
  Sex: 0

DRUGS (1)
  1. ESCITALOPRAM [Suspect]

REACTIONS (5)
  - Insomnia [None]
  - Anxiety [None]
  - Product substitution issue [None]
  - Therapeutic response unexpected with drug substitution [None]
  - Drug ineffective [None]
